FAERS Safety Report 23926270 (Version 1)
Quarter: 2024Q2

REPORT INFORMATION
  Report Type: Spontaneous
  Country: US (occurrence: None)
  Receive Date: 20240531
  Receipt Date: 20240531
  Transmission Date: 20240716
  Serious: Yes (Hospitalization)
  Sender: FDA-Public Use
  Company Number: None

PATIENT
  Age: 64 Year
  Sex: Female

DRUGS (3)
  1. TEMOZOLOMIDE [Suspect]
     Active Substance: TEMOZOLOMIDE
     Indication: Brain neoplasm malignant
     Dosage: 420MG DAILY 1-5/28 DAY CYCLE ORALLY?
     Route: 048
     Dates: start: 202403
  2. TEMOZOLOMIDE [Suspect]
     Active Substance: TEMOZOLOMIDE
     Indication: Brain neoplasm malignant
     Dosage: 5MG DAILY 1-5/28 DAY CYCLE ORALLY?
     Route: 048
     Dates: start: 202403
  3. TEMOZOLOMIDE [Suspect]
     Active Substance: TEMOZOLOMIDE
     Indication: Brain neoplasm malignant
     Dosage: FREQUENCY : AS DIRECTED;?
     Route: 048
     Dates: start: 202403

REACTIONS (2)
  - Seizure [None]
  - Cerebrovascular accident [None]

NARRATIVE: CASE EVENT DATE: 20240524
